FAERS Safety Report 23571482 (Version 2)
Quarter: 2024Q1

REPORT INFORMATION
  Report Type: Spontaneous
  Country: CN (occurrence: CN)
  Receive Date: 20240227
  Receipt Date: 20240316
  Transmission Date: 20240409
  Serious: Yes (Life-Threatening, Hospitalization, Other)
  Sender: FDA-Public Use
  Company Number: CN-Accord-408095

PATIENT
  Age: 71 Year
  Sex: Female

DRUGS (1)
  1. CLOZAPINE [Suspect]
     Active Substance: CLOZAPINE
     Indication: Depression
     Dosage: 400 CLOZAPINE TABLETS (25  MG/TABLET)
     Route: 048

REACTIONS (11)
  - Intentional overdose [Recovering/Resolving]
  - Nausea [Unknown]
  - Vomiting [Unknown]
  - Altered state of consciousness [Recovering/Resolving]
  - Pyrexia [Unknown]
  - Hypoxia [Recovering/Resolving]
  - Hypotension [Recovering/Resolving]
  - Heart rate increased [Recovering/Resolving]
  - Tremor [Recovering/Resolving]
  - Antipsychotic drug level above therapeutic [Recovering/Resolving]
  - Somnolence [Recovering/Resolving]
